FAERS Safety Report 7575939-9 (Version None)
Quarter: 2011Q2

REPORT INFORMATION
  Report Type: 
  Country: None (occurrence: None)
  Receive Date: 20110628
  Receipt Date: 20110607
  Transmission Date: 20111010
  Serious: No
  Sender: FDA-Public Use
  Company Number: US-BIOGENIDEC-2011BI023218

PATIENT
  Sex: Female

DRUGS (1)
  1. TYSABRI [Suspect]
     Indication: CROHN'S DISEASE
     Route: 042
     Dates: start: 20100219, end: 20110317

REACTIONS (3)
  - INTESTINAL OPERATION [None]
  - FEMALE GENITAL TRACT FISTULA [None]
  - THERAPEUTIC PROCEDURE [None]
